FAERS Safety Report 6062568-1 (Version None)
Quarter: 2009Q1

REPORT INFORMATION
  Report Type: 
  Country: None (occurrence: None)
  Receive Date: 20090202
  Receipt Date: 20090202
  Transmission Date: 20090719
  Serious: No
  Sender: FDA-Public Use
  Company Number: None

PATIENT
  Age: 75 Year
  Sex: Female
  Weight: 67.1324 kg

DRUGS (4)
  1. METOPROLOL ER 50 MG. ETHEX [Suspect]
     Indication: MIGRAINE
     Dosage: ONE TAB DAILY PO
     Route: 048
     Dates: start: 20081129, end: 20090126
  2. METOPROLOL ER 50 MG. ETHEX [Suspect]
     Indication: TACHYCARDIA PAROXYSMAL
     Dosage: ONE TAB DAILY PO
     Route: 048
     Dates: start: 20081129, end: 20090126
  3. METOPROLOL ER 50 MG. PAR [Suspect]
     Indication: MIGRAINE
     Dosage: ONE TAB DAILY PO
     Route: 048
     Dates: start: 20090127, end: 20090129
  4. METOPROLOL ER 50 MG. PAR [Suspect]
     Indication: TACHYCARDIA PAROXYSMAL
     Dosage: ONE TAB DAILY PO
     Route: 048
     Dates: start: 20090127, end: 20090129

REACTIONS (4)
  - DEPRESSED MOOD [None]
  - MUSCLE SPASMS [None]
  - PRODUCT QUALITY ISSUE [None]
  - WALKING AID USER [None]
